FAERS Safety Report 7802392-X (Version None)
Quarter: 2011Q4

REPORT INFORMATION
  Report Type: 
  Country: None (occurrence: None)
  Receive Date: 20111005
  Receipt Date: 20110919
  Transmission Date: 20120403
  Serious: Yes (Death, Hospitalization)
  Sender: FDA-Public Use
  Company Number: UTC-010138

PATIENT
  Age: 63 Year
  Sex: Female
  Weight: 48.18 kg

DRUGS (4)
  1. DIURETICS (DIURETICS) [Concomitant]
  2. REVATIO [Concomitant]
  3. CHEMOTHERAPY (OTHER CHEMOTHERAPEUTICS) [Concomitant]
  4. TYVASO [Suspect]
     Indication: PULMONARY ARTERIAL HYPERTENSION
     Dosage: 216 MG (54 MCG, 4 IN 1 D), INHALATION
     Route: 055
     Dates: start: 20110520

REACTIONS (4)
  - DEHYDRATION [None]
  - ASTHENIA [None]
  - WEIGHT DECREASED [None]
  - PNEUMONIA [None]
